FAERS Safety Report 5486755-6 (Version None)
Quarter: 2007Q4

REPORT INFORMATION
  Report Type: 
  Country: None (occurrence: None)
  Receive Date: 20071016
  Receipt Date: 20071012
  Transmission Date: 20080405
  Serious: Yes (Other)
  Sender: FDA-Public Use
  Company Number: A0687547A

PATIENT
  Sex: Female

DRUGS (4)
  1. REQUIP [Suspect]
     Dosage: 4MG TWICE PER DAY
     Route: 048
     Dates: start: 20070701
  2. LAMICTAL [Concomitant]
  3. LITHIUM [Concomitant]
  4. RISPERDAL [Concomitant]

REACTIONS (3)
  - MUSCULAR WEAKNESS [None]
  - PARKINSONISM [None]
  - TREMOR [None]
